FAERS Safety Report 10518309 (Version 2)
Quarter: 2014Q4

REPORT INFORMATION
  Report Type: Spontaneous
  Country: KR (occurrence: KR)
  Receive Date: 20141015
  Receipt Date: 20141015
  Transmission Date: 20150528
  Serious: Yes (Hospitalization)
  Sender: FDA-Public Use
  Company Number: KR-ACCORD-026450

PATIENT
  Age: 60 Year
  Sex: Male

DRUGS (3)
  1. OXALIPLATIN. [Concomitant]
     Active Substance: OXALIPLATIN
     Indication: COLON CANCER
     Dosage: 5 TIMES OF CONVENTIONAL ADMINISTRATION OF FOLFOX CHEMOTHERAPY
  2. FOLINIC ACID [Concomitant]
     Active Substance: LEUCOVORIN
     Indication: COLON CANCER
     Dosage: 5 TIMES OF CONVENTIONAL ADMINISTRATION OF FOLFOX CHEMOTHERAPY
  3. FLUOROURACIL. [Suspect]
     Active Substance: FLUOROURACIL
     Indication: COLON CANCER
     Dosage: 5 TIMES OF CONVENTIONAL ADMINISTRATION OF FOLFOX CHEMOTHERAPY

REACTIONS (1)
  - Wernicke^s encephalopathy [Recovered/Resolved]
